FAERS Safety Report 15273836 (Version 2)
Quarter: 2018Q3

REPORT INFORMATION
  Report Type: Spontaneous
  Country: DE (occurrence: DE)
  Receive Date: 20180813
  Receipt Date: 20180919
  Transmission Date: 20181010
  Serious: Yes (Hospitalization, Disabling, Other)
  Sender: FDA-Public Use
  Company Number: DE-B.I. PHARMACEUTICALS,INC./RIDGEFIELD-2018-BI-040450

PATIENT
  Age: 87 Year
  Sex: Female
  Weight: 49 kg

DRUGS (4)
  1. FLECAINIDE [Concomitant]
     Active Substance: FLECAINIDE
     Indication: ATRIAL FIBRILLATION
     Route: 048
     Dates: start: 20180313, end: 20180710
  2. METOPROLOL SUCCINATE. [Concomitant]
     Active Substance: METOPROLOL SUCCINATE
     Indication: ATRIAL FIBRILLATION
     Dosage: UNIT DOSE AND DAILY DOSE: 47.5
     Route: 048
     Dates: start: 201710
  3. RAMIPRIL. [Concomitant]
     Active Substance: RAMIPRIL
     Indication: HYPERTENSION
     Route: 048
     Dates: start: 201712
  4. PRADAXA [Suspect]
     Active Substance: DABIGATRAN ETEXILATE MESYLATE
     Indication: ATRIAL FIBRILLATION
     Route: 048
     Dates: start: 20180503, end: 20180710

REACTIONS (10)
  - Lacunar infarction [Unknown]
  - Upper motor neurone lesion [Unknown]
  - Arteriosclerosis [Unknown]
  - Carotid artery disease [Unknown]
  - Facial paresis [Unknown]
  - Dysarthria [Unknown]
  - Hemiparesis [Unknown]
  - Cerebral infarction [Recovered/Resolved with Sequelae]
  - Microangiopathy [Unknown]
  - Cerebrovascular accident [Unknown]

NARRATIVE: CASE EVENT DATE: 20180710
